FAERS Safety Report 15693506 (Version 2)
Quarter: 2019Q1

REPORT INFORMATION
  Report Type: Spontaneous
  Country: US (occurrence: US)
  Receive Date: 20181206
  Receipt Date: 20190131
  Transmission Date: 20190417
  Serious: No
  Sender: FDA-Public Use
  Company Number: US-TEVA-2018-US-985523

PATIENT
  Age: 59 Year
  Sex: Female
  Weight: 58 kg

DRUGS (5)
  1. DIAZEPAM. [Concomitant]
     Active Substance: DIAZEPAM
     Indication: NECK PAIN
  2. IBUPROFEN. [Concomitant]
     Active Substance: IBUPROFEN
  3. AJOVY [Suspect]
     Active Substance: FREMANEZUMAB-VFRM
     Indication: MIGRAINE
     Route: 058
     Dates: start: 20181127
  4. NEURONTIN [Concomitant]
     Active Substance: GABAPENTIN
     Indication: MIGRAINE
     Dosage: 600 MILLIGRAM DAILY;
  5. ZOMIG [Concomitant]
     Active Substance: ZOLMITRIPTAN
     Indication: MIGRAINE

REACTIONS (5)
  - Device leakage [Unknown]
  - Drug effect decreased [Unknown]
  - Nausea [Unknown]
  - Abdominal distension [Unknown]
  - Constipation [Unknown]

NARRATIVE: CASE EVENT DATE: 20181129
